FAERS Safety Report 9391486 (Version 1)
Quarter: 2013Q3

REPORT INFORMATION
  Report Type: Spontaneous
  Country: KR (occurrence: KR)
  Receive Date: 20130709
  Receipt Date: 20130709
  Transmission Date: 20140515
  Serious: Yes (Other)
  Sender: FDA-Public Use
  Company Number: KR-COVIDIEN/TYCO HEALTHCARE/MALLINCKRODT-T201303688

PATIENT
  Age: 76 Year
  Sex: Male

DRUGS (2)
  1. EXALGO EXTENDED RELEASE [Suspect]
     Indication: PAIN
     Dosage: 8-12 MG
     Route: 048
     Dates: start: 2012
  2. EXALGO EXTENDED RELEASE [Suspect]
     Dosage: 16-20 MG
     Route: 048

REACTIONS (2)
  - Renal failure [Not Recovered/Not Resolved]
  - Thinking abnormal [Not Recovered/Not Resolved]
